FAERS Safety Report 21653185 (Version 1)
Quarter: 2022Q4

REPORT INFORMATION
  Report Type: Spontaneous
  Country: DE (occurrence: DE)
  Receive Date: 20221128
  Receipt Date: 20221128
  Transmission Date: 20230113
  Serious: Yes (Death, Other)
  Sender: FDA-Public Use
  Company Number: DE-BRISTOL-MYERS SQUIBB COMPANY-2022-144410

PATIENT
  Age: 68 Year
  Sex: Male

DRUGS (23)
  1. ABRAXANE [Suspect]
     Active Substance: PACLITAXEL
     Indication: Product used for unknown indication
     Dosage: 9TH CYCLE ABRAXANE/GEMCITABINE (75% OF THE STANDARD DOSE) DAY 15
     Route: 065
     Dates: start: 20190130
  2. ABRAXANE [Suspect]
     Active Substance: PACLITAXEL
     Dosage: 11TH CYCLE ABRAXANE/GEMCITABINE (75% OF STANDARD DOSE) DAY 8
     Route: 065
     Dates: start: 20190320
  3. ABRAXANE [Suspect]
     Active Substance: PACLITAXEL
     Dosage: 9TH CYCLE ABRAXANE/GEMCITABINE (75% OF STANDARD DOSE) DAY 1
     Route: 065
     Dates: start: 20190116
  4. ABRAXANE [Suspect]
     Active Substance: PACLITAXEL
     Dosage: 9TH CYCLE ABRAXANE/GEMCITABINE (75% OF STANDARD DOSE) DAY 8
     Route: 065
     Dates: start: 20190123
  5. ABRAXANE [Suspect]
     Active Substance: PACLITAXEL
     Dosage: ) 11TH CYCLE ABRAXANE/GEMCITABINE (75% OF STANDARD DOSE) DAY 1
     Route: 065
     Dates: start: 20190313
  6. ABRAXANE [Suspect]
     Active Substance: PACLITAXEL
     Dosage: 10TH CYCLE ABRAXANE/GEMCITABINE (75% OF STANDARD DOSE) DAY 15
     Route: 065
     Dates: start: 20190227
  7. ABRAXANE [Suspect]
     Active Substance: PACLITAXEL
     Dosage: 10TH CYCLE ABRAXANE/GEMCITABINE (75% OF THE STANDARD DOSE) DAY 8
     Route: 065
     Dates: start: 20190220
  8. ABRAXANE [Suspect]
     Active Substance: PACLITAXEL
     Dosage: 10TH CYCLE ABRAXANE/GEMCITABINE (75% OF STANDARD DOSE) DAY 1
     Route: 065
     Dates: start: 20190213
  9. OLIMEL [Suspect]
     Active Substance: AMINO ACIDS\DEXTROSE\SOYBEAN OIL
     Indication: Parenteral nutrition
     Dosage: UNK
     Route: 065
     Dates: start: 20190115
  10. SODIUM CHLORIDE [Suspect]
     Active Substance: SODIUM CHLORIDE
     Indication: Cardiovascular disorder
     Dosage: AFTER PLP 500 ML
     Route: 042
     Dates: start: 20190306
  11. SODIUM CHLORIDE [Suspect]
     Active Substance: SODIUM CHLORIDE
     Dosage: AFTER PLP 500 ML
     Route: 042
     Dates: start: 20190218
  12. SODIUM CHLORIDE [Suspect]
     Active Substance: SODIUM CHLORIDE
     Dosage: AFTER PLP 500 ML
     Route: 042
     Dates: start: 20190115
  13. SODIUM CHLORIDE [Suspect]
     Active Substance: SODIUM CHLORIDE
     Dosage: AFTER PLP 500 ML
     Route: 042
     Dates: start: 20190206
  14. SODIUM CHLORIDE [Suspect]
     Active Substance: SODIUM CHLORIDE
     Dosage: BEFORE PLP 500 ML
     Route: 042
     Dates: start: 20190107
  15. CERNEVIT [Suspect]
     Active Substance: VITAMINS
     Indication: Parenteral nutrition
     Dosage: UNK
     Route: 065
     Dates: start: 20190115
  16. GEMCITABINE [Suspect]
     Active Substance: GEMCITABINE
     Indication: Product used for unknown indication
     Dosage: 9TH CYCLE ABRAXANE/GEMCITABINE (75% OF STANDARD DOSE) DAY 8
     Route: 065
     Dates: start: 20190123
  17. GEMCITABINE [Suspect]
     Active Substance: GEMCITABINE
     Dosage: 11TH CYCLE ABRAXANE/GEMCITABINE (75% OF STANDARD DOSE) DAY 8
     Route: 065
     Dates: start: 20190320
  18. GEMCITABINE [Suspect]
     Active Substance: GEMCITABINE
     Dosage: 10TH CYCLE ABRAXANE/GEMCITABINE (75% OF THE STANDARD DOSE) DAY 8
     Route: 065
     Dates: start: 20190220
  19. GEMCITABINE [Suspect]
     Active Substance: GEMCITABINE
     Dosage: 9TH CYCLE ABRAXANE/GEMCITABINE (75% OF THE STANDARD DOSE) DAY 15
     Route: 065
     Dates: start: 20190130
  20. GEMCITABINE [Suspect]
     Active Substance: GEMCITABINE
     Dosage: 10TH CYCLE ABRAXANE/GEMCITABINE (75% OF STANDARD DOSE) DAY 1
     Route: 065
     Dates: start: 20190213
  21. GEMCITABINE [Suspect]
     Active Substance: GEMCITABINE
     Dosage: 10TH CYCLE ABRAXANE/GEMCITABINE (75% OF STANDARD DOSE) DAY 15
     Route: 065
     Dates: start: 20190227
  22. GEMCITABINE [Suspect]
     Active Substance: GEMCITABINE
     Dosage: 9TH CYCLE ABRAXANE/GEMCITABINE (75% OF STANDARD DOSE) DAY
     Route: 065
     Dates: start: 20190116
  23. GEMCITABINE [Suspect]
     Active Substance: GEMCITABINE
     Dosage: 11TH CYCLE ABRAXANE/GEMCITABINE (75% OF STANDARD DOSE) DAY 1
     Route: 065
     Dates: start: 20190313

REACTIONS (1)
  - Death [Fatal]

NARRATIVE: CASE EVENT DATE: 20190330
